FAERS Safety Report 4562731-2 (Version None)
Quarter: 2005Q1

REPORT INFORMATION
  Report Type: 
  Country: None (occurrence: None)
  Receive Date: 20050127
  Receipt Date: 20050118
  Transmission Date: 20050727
  Serious: Yes (Hospitalization)
  Sender: FDA-Public Use
  Company Number: FR-BRISTOL-MYERS SQUIBB COMPANY-12829354

PATIENT
  Age: 97 Year
  Sex: Female

DRUGS (4)
  1. FUNGIZONE [Suspect]
     Route: 048
     Dates: start: 20041110, end: 20041120
  2. CIPROFLOXACIN HCL [Interacting]
     Route: 048
     Dates: start: 20041025
  3. PREVISCAN [Interacting]
     Route: 048
     Dates: start: 20041029, end: 20041120
  4. COLCHICINE [Interacting]
     Route: 048
     Dates: start: 20041115, end: 20041120

REACTIONS (3)
  - DRUG INTERACTION [None]
  - GASTROINTESTINAL HAEMORRHAGE [None]
  - PROTHROMBIN LEVEL DECREASED [None]
